FAERS Safety Report 19443340 (Version 1)
Quarter: 2021Q2

REPORT INFORMATION
  Report Type: Spontaneous
  Country: US (occurrence: US)
  Receive Date: 20210621
  Receipt Date: 20210621
  Transmission Date: 20210717
  Serious: No
  Sender: FDA-Public Use
  Company Number: US-ASSERTIO THERAPEUTICS, INC.-US-2020EGA000202

PATIENT
  Sex: Female

DRUGS (1)
  1. SPRIX [Suspect]
     Active Substance: KETOROLAC TROMETHAMINE
     Indication: MIGRAINE
     Dosage: 15.75MG/SPRAY
     Route: 045
     Dates: end: 20200630

REACTIONS (2)
  - Emotional distress [Not Recovered/Not Resolved]
  - Off label use [Unknown]
